FAERS Safety Report 10066527 (Version 1)
Quarter: 2014Q2

REPORT INFORMATION
  Report Type: Spontaneous
  Country: US (occurrence: US)
  Receive Date: 20140408
  Receipt Date: 20140408
  Transmission Date: 20141212
  Serious: Yes (Hospitalization)
  Sender: FDA-Public Use
  Company Number: US-TAKEDA-2014TUS002637

PATIENT
  Sex: 0

DRUGS (5)
  1. BRINTELLIX [Suspect]
     Indication: DEPRESSION
     Dosage: 10 MG, QD
     Route: 048
  2. SAPHRIS [Concomitant]
     Indication: SCHIZOPHRENIA
     Dosage: UNK
  3. SAPHRIS [Concomitant]
     Indication: BIPOLAR I DISORDER
  4. LITHIUM [Concomitant]
     Indication: MOOD ALTERED
     Dosage: 150 MG, UNK
  5. SEROQUEL [Concomitant]
     Dosage: UNK

REACTIONS (1)
  - Intentional self-injury [Unknown]
